FAERS Safety Report 4425696-X (Version None)
Quarter: 2004Q3

REPORT INFORMATION
  Report Type: 
  Country: None (occurrence: None)
  Receive Date: 20040716
  Receipt Date: 20040518
  Transmission Date: 20050211
  Serious: Yes (Other)
  Sender: FDA-Public Use
  Company Number: 204313

PATIENT

DRUGS (1)
  1. TNKASE [Suspect]

REACTIONS (1)
  - DRUG INEFFECTIVE [None]
